FAERS Safety Report 25062557 (Version 1)
Quarter: 2025Q1

REPORT INFORMATION
  Report Type: Report from Study
  Country: PT (occurrence: PT)
  Receive Date: 20250311
  Receipt Date: 20250311
  Transmission Date: 20250408
  Serious: Yes (Death)
  Sender: CSL BEHRING
  Company Number: PT-BEH-2025196792

PATIENT
  Sex: Male

DRUGS (1)
  1. VELTASSA [Suspect]
     Active Substance: PATIROMER
     Route: 065
     Dates: start: 20230724

REACTIONS (6)
  - Acute kidney injury [Fatal]
  - Oliguria [Fatal]
  - Respiratory tract infection [Fatal]
  - Cardiorenal syndrome [Fatal]
  - Cardiac failure acute [Fatal]
  - Cardiac arrest [Fatal]

NARRATIVE: CASE EVENT DATE: 20240406
